FAERS Safety Report 13155849 (Version 1)
Quarter: 2017Q1

REPORT INFORMATION
  Report Type: Report from Study
  Country: BR (occurrence: BR)
  Receive Date: 20170126
  Receipt Date: 20170126
  Transmission Date: 20170428
  Serious: Yes (Hospitalization, Other)
  Sender: FDA-Public Use
  Company Number: PHHY2017BR010750

PATIENT
  Sex: Female
  Weight: 45 kg

DRUGS (1)
  1. EXJADE [Suspect]
     Active Substance: DEFERASIROX
     Indication: SICKLE CELL ANAEMIA
     Dosage: 2 DF, QD (1000 MG, QD )
     Route: 048
     Dates: start: 201607

REACTIONS (1)
  - Osteonecrosis of jaw [Unknown]
